FAERS Safety Report 10264270 (Version 1)
Quarter: 2014Q2

REPORT INFORMATION
  Report Type: Spontaneous
  Country: JP (occurrence: None)
  Receive Date: 20140624
  Receipt Date: 20140624
  Transmission Date: 20141212
  Serious: Yes (Other)
  Sender: FDA-Public Use
  Company Number: 2014JUB00015

PATIENT
  Sex: 0

DRUGS (2)
  1. METHYLPREDNISOLONE [Suspect]
     Indication: IGA NEPHROPATHY
     Route: 042
  2. PREDNISONE [Suspect]
     Indication: IGA NEPHROPATHY

REACTIONS (1)
  - Chorioretinopathy [None]
